FAERS Safety Report 5402620-4 (Version None)
Quarter: 2007Q3

REPORT INFORMATION
  Report Type: 
  Country: None (occurrence: None)
  Receive Date: 20070801
  Receipt Date: 20070305
  Transmission Date: 20080115
  Serious: No
  Sender: FDA-Public Use
  Company Number: A0641761A

PATIENT

DRUGS (2)
  1. IMITREX [Suspect]
     Indication: MIGRAINE
     Route: 065
  2. IMITREX [Suspect]
     Route: 065

REACTIONS (2)
  - CHEST DISCOMFORT [None]
  - SOMNOLENCE [None]
